FAERS Safety Report 5362161-X (Version None)
Quarter: 2007Q2

REPORT INFORMATION
  Report Type: 
  Country: None (occurrence: None)
  Receive Date: 20070614
  Receipt Date: 20070605
  Transmission Date: 20071010
  Serious: Yes (Other)
  Sender: FDA-Public Use
  Company Number: TUK2007A00053

PATIENT
  Sex: Male

DRUGS (2)
  1. ACTOS [Suspect]
  2. INSULIN (INSULIN) [Concomitant]

REACTIONS (1)
  - CHEST PAIN [None]
